FAERS Safety Report 26028014 (Version 3)
Quarter: 2025Q4

REPORT INFORMATION
  Report Type: Spontaneous
  Country: EU (occurrence: EU)
  Receive Date: 20251111
  Receipt Date: 20251205
  Transmission Date: 20260118
  Serious: Yes (Other)
  Sender: SANDOZ
  Company Number: EU-Orion Corporation ORION PHARMA-SPIR2025-0013

PATIENT
  Age: 74 Year
  Sex: Female

DRUGS (9)
  1. FUROSEMIDE [Interacting]
     Active Substance: FUROSEMIDE
     Indication: Back pain
     Dosage: 40 MG, QD
     Route: 065
  2. FUROSEMIDE [Interacting]
     Active Substance: FUROSEMIDE
     Indication: Cardiac failure
  3. METOPROLOL [Interacting]
     Active Substance: METOPROLOL
     Indication: Cardiac failure
     Dosage: 25 MG, Q12H (METOPROLOL ZOK 2 X 25 MG)
     Route: 065
  4. MELOXICAM [Interacting]
     Active Substance: MELOXICAM
     Indication: Back pain
     Dosage: 15 MG, QD, IN COMBINATION WITH PARACETAMOL 3X1 G
     Route: 065
  5. ACETAMINOPHEN [Interacting]
     Active Substance: ACETAMINOPHEN
     Indication: Back pain
     Dosage: 1 G, Q8H
     Route: 065
  6. RAMIPRIL [Interacting]
     Active Substance: RAMIPRIL
     Indication: Back pain
     Dosage: 5 MG
     Route: 065
  7. RAMIPRIL [Interacting]
     Active Substance: RAMIPRIL
     Indication: Cardiac failure
  8. SPIRONOLACTONE [Interacting]
     Active Substance: SPIRONOLACTONE
     Indication: Back pain
     Dosage: 50 MG, QD
     Route: 065
  9. SPIRONOLACTONE [Interacting]
     Active Substance: SPIRONOLACTONE
     Indication: Cardiac failure

REACTIONS (5)
  - Acute kidney injury [Unknown]
  - Drug interaction [Unknown]
  - Nephropathy toxic [Unknown]
  - Renal failure [Unknown]
  - Labelled drug-drug interaction medication error [Unknown]
